FAERS Safety Report 13565192 (Version 3)
Quarter: 2017Q3

REPORT INFORMATION
  Report Type: Spontaneous
  Country: US (occurrence: US)
  Receive Date: 20170519
  Receipt Date: 20170720
  Transmission Date: 20171127
  Serious: Yes (Other)
  Sender: FDA-Public Use
  Company Number: US-BAYER-2017-093236

PATIENT
  Age: 37 Year
  Sex: Female

DRUGS (1)
  1. AVELOX [Suspect]
     Active Substance: MOXIFLOXACIN HYDROCHLORIDE
     Indication: LOCALISED INFECTION
     Dosage: 400 MG, QD
     Route: 048
     Dates: start: 20110120, end: 20110127

REACTIONS (31)
  - Skin injury [None]
  - Anxiety [None]
  - Enthesopathy [None]
  - Tension headache [None]
  - Paraesthesia [None]
  - Dizziness [None]
  - Night sweats [None]
  - Neuropathy peripheral [Not Recovered/Not Resolved]
  - Arthralgia [None]
  - Pyrexia [None]
  - Pollakiuria [None]
  - Dyspnoea [None]
  - Asthenia [None]
  - Vision blurred [None]
  - Burning sensation [None]
  - Neuralgia [None]
  - Musculoskeletal injury [None]
  - Cardiovascular disorder [None]
  - Tendonitis [None]
  - Palpitations [None]
  - Radiculopathy [None]
  - Mental disorder [None]
  - Musculoskeletal pain [None]
  - Nausea [None]
  - Neuritis [None]
  - Nervous system disorder [None]
  - Synovitis [None]
  - Thirst [None]
  - Myalgia [None]
  - Tachycardia [None]
  - Decreased appetite [None]

NARRATIVE: CASE EVENT DATE: 201101
